FAERS Safety Report 8378397-X (Version None)
Quarter: 2012Q2

REPORT INFORMATION
  Report Type: 
  Country: None (occurrence: None)
  Receive Date: 20120522
  Receipt Date: 20120514
  Transmission Date: 20120825
  Serious: Yes (Life-Threatening, Hospitalization, Other)
  Sender: FDA-Public Use
  Company Number: DE-PFIZER INC-8-96180-003B

PATIENT
  Age: 70 Year
  Sex: Female
  Weight: 86.3 kg

DRUGS (8)
  1. MAALOXAN [Concomitant]
     Dosage: UNK
     Route: 048
     Dates: start: 19960510
  2. VENLAFAXINE HCL [Suspect]
     Dosage: 112.5 MG, 1X/DAY
     Route: 048
     Dates: start: 19960608, end: 19960611
  3. VENLAFAXINE HCL [Suspect]
     Indication: DEPRESSION
     Dosage: 37.5 MG, 2X/DAY
     Route: 048
     Dates: start: 19960606, end: 19960606
  4. TOLVIN [Concomitant]
     Dosage: UNK
     Dates: start: 19960513, end: 19960605
  5. VENLAFAXINE HCL [Suspect]
     Dosage: 87.5 MG, 1X/DAY
     Route: 048
     Dates: start: 19960607, end: 19960607
  6. MODURETIC 5-50 [Concomitant]
     Dosage: UNK
     Route: 048
     Dates: start: 19960510
  7. LEVOTHYROXINE SODIUM [Concomitant]
     Dosage: UNK
     Route: 048
  8. TOLVIN [Suspect]
     Dosage: 30 TO 120 MG DAILY
     Dates: start: 19960513, end: 19960611

REACTIONS (7)
  - URINARY TRACT INFECTION [None]
  - BLOOD ALKALINE PHOSPHATASE INCREASED [None]
  - DRUG INEFFECTIVE [None]
  - AGRANULOCYTOSIS [None]
  - ALANINE AMINOTRANSFERASE INCREASED [None]
  - GAMMA-GLUTAMYLTRANSFERASE INCREASED [None]
  - TONSILLITIS [None]
